FAERS Safety Report 19889648 (Version 1)
Quarter: 2021Q3

REPORT INFORMATION
  Report Type: Spontaneous
  Country: US (occurrence: US)
  Receive Date: 20210921
  Receipt Date: 20210921
  Transmission Date: 20211014
  Serious: No
  Sender: FDA-Public Use
  Company Number: None

PATIENT
  Age: 25 Year
  Sex: Male
  Weight: 67.5 kg

DRUGS (1)
  1. MOLLUSCUM AWAY [Suspect]
     Active Substance: HERBALS
     Indication: MOLLUSCUM CONTAGIOSUM
     Dosage: ?          QUANTITY:9 PATCH(ES);?
     Route: 061
     Dates: start: 20210805, end: 20210807

REACTIONS (3)
  - Penile pain [None]
  - Penile erythema [None]
  - Penile swelling [None]

NARRATIVE: CASE EVENT DATE: 20210810
